FAERS Safety Report 19127626 (Version 1)
Quarter: 2021Q2

REPORT INFORMATION
  Report Type: Spontaneous
  Country: US (occurrence: US)
  Receive Date: 20210413
  Receipt Date: 20210413
  Transmission Date: 20210717
  Serious: No
  Sender: FDA-Public Use
  Company Number: US-ALLERGAN-2026989US

PATIENT
  Sex: Female

DRUGS (4)
  1. ZYRTEC [Concomitant]
     Active Substance: CETIRIZINE HYDROCHLORIDE
     Indication: HYPERSENSITIVITY
  2. LUMIGAN [Suspect]
     Active Substance: BIMATOPROST
     Indication: EYELASH THICKENING
     Dosage: 2 GTT, Q WEEK
     Route: 047
     Dates: start: 2019
  3. LUMIGAN [Suspect]
     Active Substance: BIMATOPROST
     Dosage: 2 GTT, Q WEEK
     Route: 047
     Dates: start: 2020
  4. PEPCID [Concomitant]
     Active Substance: FAMOTIDINE

REACTIONS (5)
  - Off label use [Unknown]
  - Product quality issue [Unknown]
  - Prescription drug used without a prescription [Unknown]
  - Expired product administered [Unknown]
  - Eye irritation [Unknown]

NARRATIVE: CASE EVENT DATE: 2019
